FAERS Safety Report 17589338 (Version 2)
Quarter: 2021Q2

REPORT INFORMATION
  Report Type: Spontaneous
  Country: US (occurrence: US)
  Receive Date: 20200327
  Receipt Date: 20210413
  Transmission Date: 20210716
  Serious: No
  Sender: FDA-Public Use
  Company Number: US-ALLERGAN-1933885US

PATIENT
  Age: 74 Year
  Sex: Male

DRUGS (3)
  1. THERATEARS [Concomitant]
     Active Substance: CARBOXYMETHYLCELLULOSE SODIUM
     Indication: DRY EYE
     Dosage: UNK, PRN
     Route: 047
  2. REFRESH OPTIVE GEL [Concomitant]
     Indication: DRY EYE
     Dosage: 2 GTT, QHS
     Route: 047
  3. LUMIGAN [Suspect]
     Active Substance: BIMATOPROST
     Indication: GLAUCOMA
     Dosage: 2 GTT, QHS
     Route: 047
     Dates: start: 201901

REACTIONS (3)
  - Eye pain [Unknown]
  - Eye irritation [Unknown]
  - Inappropriate schedule of product administration [Unknown]
